FAERS Safety Report 25645774 (Version 1)
Quarter: 2025Q3

REPORT INFORMATION
  Report Type: Spontaneous
  Country: CN (occurrence: CN)
  Receive Date: 20250805
  Receipt Date: 20250805
  Transmission Date: 20251020
  Serious: Yes (Other)
  Sender: PFIZER
  Company Number: CN-PFIZER INC-PV202500092448

PATIENT
  Age: 7 Year
  Sex: Male

DRUGS (7)
  1. XYNTHA [Suspect]
     Active Substance: MOROCTOCOG ALFA
     Indication: Factor VIII deficiency
  2. XYNTHA [Suspect]
     Active Substance: MOROCTOCOG ALFA
  3. XYNTHA [Suspect]
     Active Substance: MOROCTOCOG ALFA
  4. XYNTHA [Suspect]
     Active Substance: MOROCTOCOG ALFA
     Dosage: EVERY OTHER DAY FOR TREATMENT AS 750U EACH TIME
  5. XYNTHA [Suspect]
     Active Substance: MOROCTOCOG ALFA
     Dates: start: 202505, end: 202505
  6. XYNTHA [Suspect]
     Active Substance: MOROCTOCOG ALFA
  7. XYNTHA [Suspect]
     Active Substance: MOROCTOCOG ALFA
     Dosage: 1000 IU, QOD, 7 DAYS
     Route: 040

REACTIONS (4)
  - Haemorrhage [Unknown]
  - Gingival bleeding [Unknown]
  - Muscle haemorrhage [Unknown]
  - Injury [Unknown]

NARRATIVE: CASE EVENT DATE: 20250301
